FAERS Safety Report 11720030 (Version 4)
Quarter: 2015Q4

REPORT INFORMATION
  Report Type: Report from Study
  Country: AU (occurrence: AU)
  Receive Date: 20151110
  Receipt Date: 20151125
  Transmission Date: 20160304
  Serious: Yes (Hospitalization)
  Sender: FDA-Public Use
  Company Number: AU-ROCHE-1656615

PATIENT
  Age: 66 Year
  Sex: Male

DRUGS (1)
  1. ACTEMRA [Suspect]
     Active Substance: TOCILIZUMAB
     Indication: RHEUMATOID ARTHRITIS
     Route: 042
     Dates: start: 20150617

REACTIONS (5)
  - Peroneal nerve palsy [Not Recovered/Not Resolved]
  - Cellulitis [Recovered/Resolved]
  - Skin ulcer [Recovering/Resolving]
  - Peripheral nerve injury [Recovering/Resolving]
  - Fall [Unknown]

NARRATIVE: CASE EVENT DATE: 20151028
